FAERS Safety Report 21244846 (Version 2)
Quarter: 2022Q3

REPORT INFORMATION
  Report Type: Spontaneous
  Country: US (occurrence: US)
  Receive Date: 20220823
  Receipt Date: 20220824
  Transmission Date: 20221027
  Serious: No
  Sender: FDA-Public Use
  Company Number: US-PFIZER INC-202201065074

PATIENT
  Age: 84 Year
  Sex: Female
  Weight: 59.41 kg

DRUGS (6)
  1. DEPO-MEDROL [Suspect]
     Active Substance: METHYLPREDNISOLONE ACETATE
     Indication: Blood calcium decreased
     Dosage: UNK
     Dates: start: 20220811, end: 20220811
  2. DEPO-MEDROL [Suspect]
     Active Substance: METHYLPREDNISOLONE ACETATE
     Indication: Arthritis
  3. MARCAINE [Suspect]
     Active Substance: BUPIVACAINE HYDROCHLORIDE
     Indication: Blood calcium decreased
     Dosage: UNK
     Dates: start: 20220811, end: 20220811
  4. MARCAINE [Suspect]
     Active Substance: BUPIVACAINE HYDROCHLORIDE
     Indication: Arthritis
  5. LIDOCAINE HYDROCHLORIDE [Suspect]
     Active Substance: LIDOCAINE HYDROCHLORIDE
     Indication: Blood calcium decreased
     Dosage: UNK (INJECTION IN RIGHT KNEE, DOSE UNKNOWN )
     Dates: start: 20220811, end: 20220811
  6. LIDOCAINE HYDROCHLORIDE [Suspect]
     Active Substance: LIDOCAINE HYDROCHLORIDE
     Indication: Arthritis

REACTIONS (3)
  - Off label use [Unknown]
  - Urinary incontinence [Recovering/Resolving]
  - Micturition urgency [Unknown]

NARRATIVE: CASE EVENT DATE: 20220811
